FAERS Safety Report 9693825 (Version 2)
Quarter: 2013Q4

REPORT INFORMATION
  Report Type: Report from Study
  Country: VE (occurrence: VE)
  Receive Date: 20131118
  Receipt Date: 20131126
  Transmission Date: 20140711
  Serious: No
  Sender: FDA-Public Use
  Company Number: PHHY2013VE131041

PATIENT
  Age: 71 Year
  Sex: Female

DRUGS (3)
  1. ACLASTA [Suspect]
     Indication: OSTEOPOROSIS
     Dosage: 5 MG, ANNUALLY
     Route: 042
     Dates: start: 201302
  2. EUTHYROX [Concomitant]
     Indication: HYPOTHYROIDISM
     Dosage: 1 DF
     Route: 048
  3. CALCIUM [Concomitant]
     Dosage: UNK

REACTIONS (1)
  - Gastritis [Not Recovered/Not Resolved]
